FAERS Safety Report 8552687-X (Version None)
Quarter: 2012Q3

REPORT INFORMATION
  Report Type: 
  Country: None (occurrence: None)
  Receive Date: 20120719
  Receipt Date: 20120706
  Transmission Date: 20120928
  Serious: Yes (Hospitalization)
  Sender: FDA-Public Use
  Company Number: 2012CP000079

PATIENT
  Age: 55 Year
  Sex: Female

DRUGS (9)
  1. TRAMADOL HCL [Suspect]
     Dosage: PO
     Route: 048
     Dates: start: 20120515
  2. LOVENOX [Suspect]
     Indication: PHLEBITIS
     Dosage: 1 DOSAGE FORM; 1/1 DAY; SC
     Route: 058
     Dates: start: 20120515
  3. LEVOCARNITINE [Concomitant]
  4. PERINDOPRIL ERBUMINE [Suspect]
     Indication: HYPERTENSION
     Dosage: 10 MG; 1 DAY; PO
     Route: 048
     Dates: start: 20120601, end: 20120606
  5. CRESTOR [Concomitant]
  6. NICARDIPINE HYDROCHLORIDE [Suspect]
     Indication: HYPERTENSION
     Dosage: 50 MG; 1/1 DAY; PO
     Route: 048
     Dates: start: 20120515
  7. PROPRANOLOL HYDROCHLORIDE [Concomitant]
  8. ACETAMINOPHEN [Suspect]
     Dosage: 1 GRAM; 4/1 DAY; IV
     Route: 042
     Dates: start: 20120515
  9. LEVOCARNITINE [Suspect]
     Dosage: 1 GRAM; 4/1 DAY
     Dates: start: 20120531

REACTIONS (6)
  - NERVOUS SYSTEM DISORDER [None]
  - DISTURBANCE IN ATTENTION [None]
  - COMA [None]
  - AGRANULOCYTOSIS [None]
  - PHLEBITIS [None]
  - LEUKOPENIA [None]
